FAERS Safety Report 7150547-2 (Version None)
Quarter: 2010Q4

REPORT INFORMATION
  Report Type: 
  Country: None (occurrence: None)
  Receive Date: 20101124
  Receipt Date: 20101116
  Transmission Date: 20110411
  Serious: Yes (Hospitalization, Other)
  Sender: FDA-Public Use
  Company Number: 2010MA004605

PATIENT
  Age: 76 Year
  Sex: Male

DRUGS (3)
  1. LIDOCAINE HCL [Suspect]
     Indication: SKIN TEST
     Dosage: 1 PCT; ID
     Route: 023
  2. PROCAINE HCL [Suspect]
     Indication: SKIN TEST
     Dosage: 1 PCT; ID
     Route: 023
  3. LIDOCAINE HYDROCHLORIDE IN PLASTIC CONTAINER [Concomitant]

REACTIONS (2)
  - ANGIOEDEMA [None]
  - BRONCHOSPASM [None]
